FAERS Safety Report 17594525 (Version 2)
Quarter: 2020Q1

REPORT INFORMATION
  Report Type: Report from Study
  Country: US (occurrence: US)
  Receive Date: 20200327
  Receipt Date: 20200331
  Transmission Date: 20200409
  Serious: Yes (Death, Hospitalization)
  Sender: FDA-Public Use
  Company Number: US-ACTELION-A-US2017-151294

PATIENT
  Age: 76 Year
  Sex: Female
  Weight: 60.32 kg

DRUGS (7)
  1. VELETRI [Suspect]
     Active Substance: EPOPROSTENOL
     Dosage: 26 NG/KG, PER MIN
     Route: 042
  2. VELETRI [Suspect]
     Active Substance: EPOPROSTENOL
     Indication: PULMONARY ARTERIAL HYPERTENSION
     Dosage: 39 NG/KG, PER MIN
     Route: 042
  3. VELETRI [Suspect]
     Active Substance: EPOPROSTENOL
     Dosage: 39 NG/KG, PER MIN
     Route: 042
  4. ADCIRCA [Concomitant]
     Active Substance: TADALAFIL
  5. TRAMADOL. [Concomitant]
     Active Substance: TRAMADOL
  6. AMLODIPINE [Concomitant]
     Active Substance: AMLODIPINE BESYLATE
  7. TADALAFIL. [Concomitant]
     Active Substance: TADALAFIL

REACTIONS (28)
  - Anaemia [Unknown]
  - Pain [Unknown]
  - Viral infection [Unknown]
  - Insomnia [Unknown]
  - Lethargy [Unknown]
  - Arthritis [Unknown]
  - Taste disorder [Unknown]
  - Burning sensation [Unknown]
  - Back pain [Unknown]
  - Pyrexia [Unknown]
  - Chills [Unknown]
  - Hospitalisation [Unknown]
  - CREST syndrome [Unknown]
  - Device leakage [Unknown]
  - Gastrooesophageal reflux disease [Unknown]
  - Throat irritation [Unknown]
  - Renal disorder [Unknown]
  - Rash [Unknown]
  - Fatigue [Unknown]
  - Diarrhoea [Unknown]
  - Drug withdrawal syndrome [Unknown]
  - Platelet count decreased [Unknown]
  - Death [Fatal]
  - Pain in jaw [Unknown]
  - Malaise [Unknown]
  - Urinary tract infection [Unknown]
  - Arthralgia [Unknown]
  - Nausea [Unknown]

NARRATIVE: CASE EVENT DATE: 20180409
